FAERS Safety Report 10759409 (Version 1)
Quarter: 2015Q1

REPORT INFORMATION
  Report Type: Other
  Country: US (occurrence: US)
  Receive Date: 20150203
  Receipt Date: 20150203
  Transmission Date: 20150721
  Serious: Yes (Death)
  Sender: FDA-Public Use
  Company Number: US-FRI-1000074203

PATIENT
  Age: 38 Year
  Sex: Female

DRUGS (5)
  1. METOPROLOL [Suspect]
     Active Substance: METOPROLOL
  2. HYDROMORPHONE [Suspect]
     Active Substance: HYDROMORPHONE
  3. NEBIVOLOL [Suspect]
     Active Substance: NEBIVOLOL
  4. OXYMORPHONE [Suspect]
     Active Substance: OXYMORPHONE
  5. WARFARIN [Suspect]
     Active Substance: WARFARIN

REACTIONS (2)
  - Completed suicide [Fatal]
  - Cardio-respiratory arrest [Fatal]
